FAERS Safety Report 7885152-3 (Version None)
Quarter: 2011Q4

REPORT INFORMATION
  Report Type: 
  Country: None (occurrence: None)
  Receive Date: 20111102
  Receipt Date: 20111019
  Transmission Date: 20120403
  Serious: Yes (Hospitalization, Other)
  Sender: FDA-Public Use
  Company Number: US-ELI_LILLY_AND_COMPANY-US201109003922

PATIENT
  Sex: Male
  Weight: 88.073 kg

DRUGS (26)
  1. NOVOLOG [Concomitant]
  2. ADDERALL 5 [Concomitant]
     Dosage: 30 MG, QD
  3. ASPIRIN [Concomitant]
     Dosage: 81 MG, QD
  4. NEXIUM [Concomitant]
     Dosage: 40 MG, QD
  5. LYRICA [Concomitant]
     Dosage: 75 MG, BID
  6. ALBUTEROL [Concomitant]
     Dosage: 25 MG, UNK
  7. VITAMIN E [Concomitant]
     Dosage: 1000 IU, UNK
  8. NITROSTAT [Concomitant]
     Dosage: UNK, PRN
  9. HUMALOG [Suspect]
     Indication: DIABETES MELLITUS
     Dosage: UNK, TID
     Dates: start: 20090101
  10. LEVEMIR [Concomitant]
     Dosage: 40 U, EACH EVENING
  11. VESICARE [Concomitant]
     Dosage: 10 MG, QD
  12. CLONAZEPAM [Concomitant]
     Dosage: 1 MG, TID
  13. LASIX [Concomitant]
     Dosage: 40 MG, QD
  14. VITAMIN D [Concomitant]
     Dosage: 1000 IU, QD
  15. FISH OIL [Concomitant]
  16. PROZAC [Concomitant]
     Dosage: 20 MG, QD
  17. GLUCOPHAGE [Concomitant]
     Dosage: 500 MG, BID
  18. AMBIEN [Concomitant]
     Dosage: 10 MG, UNK
  19. LIPITOR [Concomitant]
     Dosage: 20 MG, UNK
  20. ABILIFY [Concomitant]
     Dosage: 10 MG, QD
  21. LORTAB [Concomitant]
     Dosage: UNK, PRN
  22. PLAVIX [Concomitant]
     Dosage: 75 MG, QD
  23. BENZONATATE [Concomitant]
     Dosage: 200 MG, TID
  24. ROBAXIN [Concomitant]
     Dosage: 750 MG, PRN
  25. LISINOPRIL [Concomitant]
     Dosage: 10 MG, BID
  26. MUCINEX [Concomitant]
     Dosage: UNK

REACTIONS (5)
  - PNEUMONIA [None]
  - CHRONIC OBSTRUCTIVE PULMONARY DISEASE [None]
  - IMPAIRED HEALING [None]
  - EMPYEMA [None]
  - DYSPHAGIA [None]
